FAERS Safety Report 8847911 (Version 1)
Quarter: 2012Q4

REPORT INFORMATION
  Report Type: 
  Country: US (occurrence: US)
  Receive Date: 20121018
  Receipt Date: 20121018
  Transmission Date: 20130627
  Serious: Yes (Hospitalization)
  Sender: FDA-Public Use
  Company Number: US-009507513-2009SP017640

PATIENT

DRUGS (1)
  1. NUVARING [Suspect]
     Indication: CONTRACEPTION
     Dosage: 1 DF, QM
     Dates: start: 200506, end: 200606

REACTIONS (17)
  - Scar [Unknown]
  - Deep vein thrombosis [Recovering/Resolving]
  - Pain [Unknown]
  - Dysthymic disorder [Not Recovered/Not Resolved]
  - Headache [Unknown]
  - Haematoma [Recovering/Resolving]
  - Antiphospholipid antibodies positive [Unknown]
  - Haematocrit decreased [Unknown]
  - Chest pain [Unknown]
  - Dyspnoea [Unknown]
  - Contusion [Unknown]
  - Acne [Unknown]
  - Smear cervix abnormal [Unknown]
  - Loop electrosurgical excision procedure [Unknown]
  - Fibrocystic breast disease [Unknown]
  - Oral herpes [Unknown]
  - Gastroenteritis viral [Unknown]
